FAERS Safety Report 7179557-6 (Version None)
Quarter: 2010Q4

REPORT INFORMATION
  Report Type: 
  Country: None (occurrence: None)
  Receive Date: 20101221
  Receipt Date: 20101213
  Transmission Date: 20110411
  Serious: Yes (Hospitalization)
  Sender: FDA-Public Use
  Company Number: FR-ROCHE-674717

PATIENT
  Sex: Female

DRUGS (6)
  1. MYCOPHENOLATE MOFETIL [Suspect]
     Route: 048
     Dates: start: 20070425
  2. NEORAL [Suspect]
     Route: 048
     Dates: start: 20070427
  3. CORTANCYL [Suspect]
     Dosage: DRUG NAME REPORTED AS CORTANCYL (PREDNISONE ACETATE)
     Route: 048
     Dates: start: 20070428
  4. COAPROVEL [Concomitant]
     Dates: start: 20081203
  5. TAHOR [Concomitant]
     Dates: start: 20081203
  6. AMLOR [Concomitant]
     Dates: start: 20081203

REACTIONS (3)
  - PYELONEPHRITIS [None]
  - PYELONEPHRITIS ACUTE [None]
  - URETERAL CATHETERISATION [None]
